FAERS Safety Report 15734217 (Version 1)
Quarter: 2018Q4

REPORT INFORMATION
  Report Type: Spontaneous
  Country: US (occurrence: US)
  Receive Date: 20181203
  Receipt Date: 20181203
  Transmission Date: 20190205
  Serious: Yes (Life-Threatening, Hospitalization, Disabling)
  Sender: FDA-Public Use
  Company Number: None

PATIENT
  Age: 45 Year
  Sex: Male
  Weight: 97.65 kg

DRUGS (1)
  1. AMLODIPINE/BENAZEPRIL 5/20MG [Suspect]
     Active Substance: AMLODIPINE BESYLATE\BENAZEPRIL HYDROCHLORIDE
     Indication: HYPERTENSION
     Route: 048
     Dates: start: 20140222, end: 20181202

REACTIONS (2)
  - Blood pressure abnormal [None]
  - Renal failure [None]

NARRATIVE: CASE EVENT DATE: 20180822
